FAERS Safety Report 4816580-8 (Version None)
Quarter: 2005Q4

REPORT INFORMATION
  Report Type: 
  Country: None (occurrence: None)
  Receive Date: 20051028
  Receipt Date: 20051011
  Transmission Date: 20060501
  Serious: No
  Sender: FDA-Public Use
  Company Number: 2005S1008518

PATIENT
  Age: 50 Year
  Sex: Male
  Weight: 69.4003 kg

DRUGS (2)
  1. EXTENDED PHENYTOIN SODIUM [Suspect]
     Indication: CONVULSION
     Dosage: 300 MG; HS; PO
     Route: 048
     Dates: start: 20050803, end: 20050830
  2. ACETAMINOPHEN [Concomitant]

REACTIONS (7)
  - CONTUSION [None]
  - DRUG LEVEL DECREASED [None]
  - FALL [None]
  - GRAND MAL CONVULSION [None]
  - PHARMACEUTICAL PRODUCT COMPLAINT [None]
  - SKIN LACERATION [None]
  - TONGUE BITING [None]
